FAERS Safety Report 8455369-8 (Version None)
Quarter: 2012Q2

REPORT INFORMATION
  Report Type: 
  Country: None (occurrence: None)
  Receive Date: 20120621
  Receipt Date: 20120614
  Transmission Date: 20120825
  Serious: Yes (Hospitalization)
  Sender: FDA-Public Use
  Company Number: FR-AMGEN-FRACT2012014060

PATIENT
  Age: 47 Year
  Sex: Female
  Weight: 60 kg

DRUGS (18)
  1. DOXYCYCLINE [Concomitant]
     Dosage: 100 MG, QD
     Route: 048
     Dates: start: 20120106
  2. PRIMPERAN TAB [Concomitant]
     Dosage: 20 MG, UNK
     Route: 042
     Dates: start: 20120106
  3. KABIVEN [Concomitant]
     Dosage: UNK
     Dates: start: 20120106
  4. METHYLPREDNISOLONE [Concomitant]
     Dosage: 80 MG, UNK
     Dates: start: 20111231, end: 20120104
  5. TRANXENE [Concomitant]
     Dosage: 20 MG, UNK
     Route: 042
     Dates: start: 20120106, end: 20120201
  6. PANITUMUMAB [Suspect]
     Indication: GASTROOESOPHAGEAL CANCER
     Dosage: 360 MG, UNK
     Route: 042
     Dates: start: 20120105, end: 20120215
  7. FLUOROURACIL [Concomitant]
     Dosage: UNK
     Route: 042
     Dates: start: 20120105, end: 20120215
  8. DECAN [Concomitant]
     Dosage: UNK
     Dates: start: 20120106
  9. INNOHEP [Concomitant]
     Indication: THROMBOSIS
     Dosage: UNK
     Route: 058
     Dates: start: 20120106
  10. GAVISCON [Concomitant]
     Indication: GASTROOESOPHAGEAL REFLUX DISEASE
     Dosage: UNK
     Dates: start: 20111201, end: 20120101
  11. PANTOPRAZOLE [Concomitant]
     Indication: GASTROOESOPHAGEAL REFLUX DISEASE
     Dosage: 40 MG, UNK
     Route: 042
     Dates: start: 20111230, end: 20120107
  12. SOLU-MEDROL [Concomitant]
     Dosage: 60 MG, UNK
     Dates: start: 20120105
  13. CERNEVIT-12 [Concomitant]
     Dosage: UNK
     Dates: start: 20120106
  14. LEVOFOLINATE CALCIUM [Concomitant]
     Dosage: 330 MG, UNK
     Route: 042
     Dates: start: 20120105, end: 20120215
  15. OXALIPLATIN [Concomitant]
     Dosage: 140 MG, UNK
     Route: 042
     Dates: start: 20120105, end: 20120215
  16. ERYFLUID [Concomitant]
     Dosage: UNK
     Route: 061
     Dates: start: 20120106
  17. PANTOPRAZOLE SODIUM [Concomitant]
     Indication: GASTROOESOPHAGEAL REFLUX DISEASE
     Dosage: 40 MG, UNK
     Route: 042
     Dates: start: 20120106
  18. DEXERYL [Concomitant]

REACTIONS (8)
  - GENERAL PHYSICAL HEALTH DETERIORATION [None]
  - HYPOKALAEMIA [None]
  - VOMITING [None]
  - DIARRHOEA [None]
  - NEUTROPENIA [None]
  - ASTHENIA [None]
  - FUNCTIONAL GASTROINTESTINAL DISORDER [None]
  - PULMONARY EMBOLISM [None]
